FAERS Safety Report 6577011-3 (Version None)
Quarter: 2010Q1

REPORT INFORMATION
  Report Type: 
  Country: None (occurrence: None)
  Receive Date: 20100210
  Receipt Date: 20100201
  Transmission Date: 20100710
  Serious: Yes (Hospitalization)
  Sender: FDA-Public Use
  Company Number: IT-PFIZER INC-2010013553

PATIENT
  Age: 14 Year
  Sex: Female

DRUGS (4)
  1. METHOTREXATE [Suspect]
  2. CISPLATIN [Suspect]
  3. DOXORUBICIN HCL [Suspect]
  4. IFOSFAMIDE [Suspect]

REACTIONS (1)
  - OSTEOPOROTIC FRACTURE [None]
